FAERS Safety Report 4310034-3 (Version None)
Quarter: 2004Q1

REPORT INFORMATION
  Report Type: 
  Country: None (occurrence: None)
  Receive Date: 20040303
  Receipt Date: 20040223
  Transmission Date: 20041129
  Serious: Yes (Death, Hospitalization)
  Sender: FDA-Public Use
  Company Number: 200410725FR

PATIENT
  Age: 73 Year
  Sex: Female

DRUGS (10)
  1. ULCAR [Suspect]
     Indication: ULCER
     Route: 048
     Dates: start: 20040203, end: 20040208
  2. FLAGYL [Suspect]
     Indication: CLOSTRIDIUM COLITIS
     Dates: start: 20040205
  3. FRAXIPARINE [Suspect]
     Indication: PROPHYLAXIS
     Route: 058
     Dates: start: 20040109, end: 20040204
  4. MOPRAL [Suspect]
     Route: 042
     Dates: start: 20040203, end: 20040208
  5. MOTILIUM [Concomitant]
     Route: 048
  6. LOPRESSOR [Concomitant]
     Route: 048
  7. MODURETIC ^MSD^ [Concomitant]
  8. DOLIPRANE [Concomitant]
     Route: 048
  9. CLAMOXYL [Concomitant]
     Indication: CLOSTRIDIUM COLITIS
  10. ZECLAR [Concomitant]
     Indication: CLOSTRIDIUM COLITIS

REACTIONS (6)
  - CLOSTRIDIUM COLITIS [None]
  - DISEASE RECURRENCE [None]
  - HAEMOGLOBIN DECREASED [None]
  - MELAENA [None]
  - PLATELET COUNT DECREASED [None]
  - ULCER HAEMORRHAGE [None]
